FAERS Safety Report 5192442-4 (Version None)
Quarter: 2006Q4

REPORT INFORMATION
  Report Type: 
  Country: None (occurrence: None)
  Receive Date: 20061227
  Receipt Date: 20060822
  Transmission Date: 20070319
  Serious: Yes (Death, Hospitalization)
  Sender: FDA-Public Use
  Company Number: US-NOVOPROD-256300

PATIENT
  Age: 39 Year
  Sex: Male

DRUGS (1)
  1. NOVOSEVEN [Suspect]
     Indication: SHOCK HAEMORRHAGIC
     Dosage: 9.6 MG, UNK
     Route: 042

REACTIONS (1)
  - INTESTINAL INFARCTION [None]
